FAERS Safety Report 15867357 (Version 4)
Quarter: 2019Q1

REPORT INFORMATION
  Report Type: Spontaneous
  Country: HU (occurrence: HU)
  Receive Date: 20190125
  Receipt Date: 20190211
  Transmission Date: 20190417
  Serious: No
  Sender: FDA-Public Use
  Company Number: HU-009507513-1901HUN006694

PATIENT
  Age: 16 Year
  Sex: Female

DRUGS (13)
  1. ERYTHROMYCIN. [Concomitant]
     Active Substance: ERYTHROMYCIN
     Indication: OCULAR ROSACEA
     Dosage: UNK
  2. TETRACYCLINE [Concomitant]
     Active Substance: TETRACYCLINE
     Indication: OCULAR ROSACEA
     Dosage: UNK
  3. BETAMETHASONE DIPROPIONATE (+) BETAMETHASONE SODIUM PHOSPHATE [Suspect]
     Active Substance: BETAMETHASONE DIPROPIONATE\BETAMETHASONE SODIUM PHOSPHATE
     Indication: OCULAR ROSACEA
     Dosage: UNK
  4. TOBRAMYCIN. [Concomitant]
     Active Substance: TOBRAMYCIN
     Indication: OCULAR ROSACEA
     Dosage: UNK
  5. OXYTETRACYCLINE [Concomitant]
     Active Substance: OXYTETRACYCLINE
     Indication: OCULAR ROSACEA
     Dosage: UNK
  6. METRONIDAZOLE. [Concomitant]
     Active Substance: METRONIDAZOLE
     Indication: OCULAR ROSACEA
     Dosage: UNK
  7. VITAMIN A PALMITATE [Concomitant]
     Active Substance: VITAMIN A PALMITATE
     Indication: OCULAR ROSACEA
     Dosage: UNK
  8. DEXAMETHASONE. [Concomitant]
     Active Substance: DEXAMETHASONE
     Indication: OCULAR ROSACEA
     Dosage: UNK
  9. INDOMETHACIN. [Concomitant]
     Active Substance: INDOMETHACIN
     Indication: OCULAR ROSACEA
     Dosage: UNK
  10. FLUOROMETHOLONE. [Concomitant]
     Active Substance: FLUOROMETHOLONE
     Indication: OCULAR ROSACEA
     Dosage: UNK
  11. DOXYCYCLINE. [Concomitant]
     Active Substance: DOXYCYCLINE
     Indication: OCULAR ROSACEA
     Dosage: UNK
  12. FUSIDIC ACID [Concomitant]
     Active Substance: FUSIDIC ACID
     Indication: OCULAR ROSACEA
     Dosage: UNK
  13. ZINC ACETATE [Concomitant]
     Active Substance: ZINC ACETATE
     Indication: OCULAR ROSACEA
     Dosage: UNK

REACTIONS (2)
  - Product use in unapproved indication [Unknown]
  - Exposure during pregnancy [Unknown]
